FAERS Safety Report 5399083-4 (Version None)
Quarter: 2007Q3

REPORT INFORMATION
  Report Type: 
  Country: None (occurrence: None)
  Receive Date: 20070727
  Receipt Date: 20060703
  Transmission Date: 20080115
  Serious: No
  Sender: FDA-Public Use
  Company Number: A0611221A

PATIENT
  Age: 23 Year
  Sex: Male

DRUGS (1)
  1. LOTRONEX [Suspect]
     Indication: DRUG USE FOR UNKNOWN INDICATION
     Route: 048
     Dates: start: 20060101

REACTIONS (1)
  - DRUG INEFFECTIVE [None]
